FAERS Safety Report 18760739 (Version 1)
Quarter: 2021Q1

REPORT INFORMATION
  Report Type: Spontaneous
  Country: RU (occurrence: RU)
  Receive Date: 20210119
  Receipt Date: 20210119
  Transmission Date: 20210419
  Serious: Yes (Hospitalization)
  Sender: FDA-Public Use
  Company Number: RU-BIOMARINAP-RU-2021-134474

PATIENT
  Sex: Female

DRUGS (1)
  1. BRINEURA [Suspect]
     Active Substance: CERLIPONASE ALFA
     Indication: NEURONAL CEROID LIPOFUSCINOSIS
     Dosage: 300 MILLIGRAM
     Route: 020

REACTIONS (2)
  - Phlebitis [Unknown]
  - Body temperature increased [Unknown]

NARRATIVE: CASE EVENT DATE: 20210113
